FAERS Safety Report 7105910-2 (Version None)
Quarter: 2010Q4

REPORT INFORMATION
  Report Type: 
  Country: None (occurrence: None)
  Receive Date: 20101116
  Receipt Date: 20101108
  Transmission Date: 20110411
  Serious: Yes (Life-Threatening)
  Sender: FDA-Public Use
  Company Number: B0670933A

PATIENT
  Sex: Male

DRUGS (4)
  1. VALTREX [Suspect]
     Indication: HERPES ZOSTER
     Dosage: 3000MG PER DAY
     Route: 048
     Dates: start: 20100812, end: 20100815
  2. ALMARL [Suspect]
     Indication: HYPERTENSION
     Dosage: 20MG PER DAY
     Route: 048
     Dates: start: 20100806
  3. METHYCOOL [Concomitant]
     Indication: ANALGESIC THERAPY
     Dosage: 1.5MG PER DAY
     Route: 048
     Dates: start: 20100812, end: 20100815
  4. LOBU [Concomitant]
     Indication: ANALGESIC THERAPY
     Dosage: 180MG PER DAY
     Route: 048
     Dates: start: 20100812, end: 20100815

REACTIONS (4)
  - ANAPHYLACTOID REACTION [None]
  - ASTHMA [None]
  - DYSPNOEA [None]
  - FACE OEDEMA [None]
